FAERS Safety Report 24833842 (Version 1)
Quarter: 2025Q1

REPORT INFORMATION
  Report Type: Spontaneous
  Country: US (occurrence: US)
  Receive Date: 20250112
  Receipt Date: 20250112
  Transmission Date: 20250409
  Serious: No
  Sender: SANOFI AVENTIS
  Company Number: US-SA-2025SA004684

PATIENT
  Age: 14 Year
  Sex: Female
  Weight: 52.16 kg

DRUGS (1)
  1. FABRAZYME [Suspect]
     Active Substance: AGALSIDASE BETA
     Indication: Fabry^s disease
     Dosage: 100 MG, QOW
     Route: 042
     Dates: start: 202109

REACTIONS (1)
  - Weight decreased [Unknown]
